FAERS Safety Report 9397188 (Version 46)
Quarter: 2018Q4

REPORT INFORMATION
  Report Type: Report from Study
  Country: CA (occurrence: CA)
  Receive Date: 20130712
  Receipt Date: 20181224
  Transmission Date: 20190205
  Serious: Yes (Death, Hospitalization, Other)
  Sender: FDA-Public Use
  Company Number: PHHY2013CA070488

PATIENT
  Age: 60 Year
  Sex: Male

DRUGS (10)
  1. SANDOSTATIN LAR DEPOT [Suspect]
     Active Substance: OCTREOTIDE ACETATE
     Indication: INSULINOMA
     Dosage: 40 MG, QMO (EVERY 4 WEEKS)
     Route: 030
     Dates: start: 20130628
  2. SANDOSTATIN LAR DEPOT [Suspect]
     Active Substance: OCTREOTIDE ACETATE
     Dosage: 40 MG, QMO (EVERY 4 WEEKS)
     Route: 030
  3. SANDOSTATIN [Suspect]
     Active Substance: OCTREOTIDE ACETATE
     Dosage: 100 UG, TID
     Route: 058
     Dates: start: 201306
  4. SANDOSTATIN [Suspect]
     Active Substance: OCTREOTIDE ACETATE
     Dosage: UNK UNK, QD
     Route: 058
     Dates: start: 201502
  5. SANDOSTATIN [Suspect]
     Active Substance: OCTREOTIDE ACETATE
     Dosage: 100 UG, TID
     Route: 058
  6. SANDOSTATIN LAR DEPOT [Suspect]
     Active Substance: OCTREOTIDE ACETATE
     Dosage: 20 MG, QMO (EVERY 4 WEEKS)
     Route: 030
  7. SANDOSTATIN LAR DEPOT [Suspect]
     Active Substance: OCTREOTIDE ACETATE
     Dosage: UNK
     Route: 030
     Dates: start: 20170321
  8. VENLAFAXINE [Concomitant]
     Active Substance: VENLAFAXINE HYDROCHLORIDE
     Indication: PRODUCT USED FOR UNKNOWN INDICATION
     Dosage: 150 MG, QD
     Route: 065
  9. SANDOSTATIN [Suspect]
     Active Substance: OCTREOTIDE ACETATE
     Indication: INSULINOMA
     Dosage: 100 UG, TID
     Route: 058
     Dates: start: 2013
  10. CORTISONE [Concomitant]
     Active Substance: CORTISONE\HYDROCORTISONE
     Indication: PRODUCT USED FOR UNKNOWN INDICATION
     Route: 065

REACTIONS (42)
  - Blood pressure systolic increased [Unknown]
  - Needle issue [Unknown]
  - Tremor [Unknown]
  - Dyspnoea exertional [Unknown]
  - Hypoglycaemia [Unknown]
  - Abdominal pain [Unknown]
  - Heart rate increased [Fatal]
  - Bronchitis [Unknown]
  - Dyspnoea [Recovering/Resolving]
  - Blood glucose fluctuation [Unknown]
  - Cataract [Recovered/Resolved]
  - Blood pressure increased [Unknown]
  - Pain [Unknown]
  - Vein disorder [Unknown]
  - Anaemia [Unknown]
  - Wound secretion [Unknown]
  - Oedema peripheral [Unknown]
  - Clostridium difficile infection [Unknown]
  - Oedema peripheral [Recovered/Resolved]
  - Asthenia [Unknown]
  - Malignant neoplasm progression [Unknown]
  - Ocular hyperaemia [Unknown]
  - Somnolence [Unknown]
  - Fall [Unknown]
  - Hyperhidrosis [Unknown]
  - Pain in extremity [Recovered/Resolved]
  - Pain in extremity [Unknown]
  - Dizziness [Recovered/Resolved]
  - Coma [Recovered/Resolved]
  - Inflammatory bowel disease [Unknown]
  - Nausea [Unknown]
  - Vomiting [Unknown]
  - Limb injury [Unknown]
  - Contusion [Unknown]
  - Diabetic coma [Unknown]
  - Face oedema [Unknown]
  - Cough [Recovering/Resolving]
  - Constipation [Not Recovered/Not Resolved]
  - General physical health deterioration [Unknown]
  - Generalised oedema [Recovering/Resolving]
  - Swelling face [Unknown]
  - Fatigue [Unknown]

NARRATIVE: CASE EVENT DATE: 2015
